FAERS Safety Report 9632262 (Version 3)
Quarter: 2013Q4

REPORT INFORMATION
  Report Type: Spontaneous
  Country: AT (occurrence: AT)
  Receive Date: 20131018
  Receipt Date: 20131107
  Transmission Date: 20140711
  Serious: Yes (Life-Threatening, Hospitalization, Other)
  Sender: FDA-Public Use
  Company Number: AT-PFIZER INC-2013294570

PATIENT
  Age: 65 Year
  Sex: Female
  Weight: 71.5 kg

DRUGS (42)
  1. SERTRALINE HCL [Suspect]
     Dosage: 25 MG, UNK
     Dates: start: 20130612, end: 20130613
  2. SERTRALINE HCL [Suspect]
     Dosage: 50 MG, UNK
     Dates: start: 20130614, end: 20130616
  3. SERTRALINE HCL [Suspect]
     Dosage: 75 MG, UNK
     Dates: start: 20130617, end: 20130618
  4. SERTRALINE HCL [Suspect]
     Dosage: 100 MG, UNK
     Dates: start: 20130619, end: 20130619
  5. SERTRALINE HCL [Suspect]
     Dosage: 50 MG, UNK
     Dates: start: 20130626, end: 20130626
  6. SERTRALINE HCL [Suspect]
     Dosage: 100 MG, UNK
     Dates: start: 20130627, end: 20130628
  7. SERTRALINE HCL [Suspect]
     Dosage: 150 MG, UNK
     Dates: start: 20130629, end: 20130629
  8. SERTRALINE HCL [Suspect]
     Dosage: 100 MG, UNK
     Dates: start: 20130711, end: 20130711
  9. SEROQUEL [Suspect]
     Dosage: 25 MG, UNK
     Dates: start: 20130625, end: 20130625
  10. SEROQUEL [Suspect]
     Dosage: 50 MG, UNK
     Dates: start: 20130626, end: 20130626
  11. SEROQUEL [Suspect]
     Dosage: 100 MG, UNK
     Dates: start: 20130627, end: 20130627
  12. SEROQUEL [Suspect]
     Dosage: 200 MG, UNK
     Dates: start: 20130628, end: 20130628
  13. SEROQUEL [Suspect]
     Dosage: 300 MG, UNK
     Dates: start: 20130629, end: 20130709
  14. SEROQUEL [Suspect]
     Dosage: 400 MG, UNK
     Dates: start: 20130710, end: 20130718
  15. SEROQUEL [Suspect]
     Dosage: 200 MG, UNK
     Dates: start: 20130719, end: 20130720
  16. TEMESTA [Concomitant]
     Dosage: BETWEEN 1-2MG
     Dates: start: 20130614, end: 20130701
  17. TEMESTA [Concomitant]
     Dosage: 1-2MG (1.5 MG)
     Dates: start: 20130702, end: 20130705
  18. TEMESTA [Concomitant]
     Dosage: BETWEEN 1-2MG (1 MG)
     Dates: start: 20130706, end: 20130710
  19. TEMESTA [Concomitant]
     Dosage: BETWEEN 1-2MG (2 MG)
     Dates: start: 20130711, end: 20130711
  20. TEMESTA [Concomitant]
     Dosage: BETWEEN 1-2MG (1 MG)
     Dates: start: 20130712, end: 20130714
  21. TEMESTA [Concomitant]
     Dosage: BETWEEN 1-2MG (1,5 MG)
     Dates: start: 20130715, end: 20130715
  22. TEMESTA [Concomitant]
     Dosage: BETWEEN 1-2MG (1 MG)
     Dates: start: 20130716, end: 20130719
  23. TEMESTA [Concomitant]
     Dosage: 0.5 MG, UNK
     Dates: start: 2013
  24. EFECTIN ER [Concomitant]
     Dosage: 75 MG, UNK
     Dates: start: 20130712, end: 20130716
  25. EFECTIN ER [Concomitant]
     Dosage: 150 MG, UNK
     Dates: start: 20130717
  26. SAROTEN [Concomitant]
     Dosage: UNK (SINCE MONTHS)
     Dates: end: 20130606
  27. IXEL [Concomitant]
     Dosage: 100 MG, UNK DOSE REDUCED
     Dates: end: 20130610
  28. IXEL [Concomitant]
     Dosage: 50 MG, UNK
     Dates: start: 20130611, end: 20130612
  29. MIRTABENE [Concomitant]
     Dosage: 15-30MG
     Dates: start: 20130607, end: 20130624
  30. LUMIGAN [Concomitant]
     Dosage: UNK
  31. DOMINAL [Concomitant]
     Dosage: 40-80MG
     Dates: start: 20130607
  32. DOMINAL [Concomitant]
     Dosage: 40 MG, UNK
     Dates: start: 20130722
  33. ATARAX [Concomitant]
     Dosage: UNK
     Dates: start: 20130609
  34. HOVA [Concomitant]
     Dosage: UNK, AS NEEDED
     Dates: start: 20130609
  35. ZOLDEM [Concomitant]
     Dosage: 10 MG, UNK
     Dates: start: 20130614
  36. RIVOTRIL [Concomitant]
     Dosage: 0.5 MG, UNK
     Dates: start: 20130607, end: 20130610
  37. PRAXITEN [Concomitant]
     Dosage: 30 MG, UNK
     Dates: start: 20130612, end: 20130613
  38. INDERAL [Concomitant]
     Dosage: 20 MG, UNK
     Dates: start: 20130708, end: 20130708
  39. INDERAL [Concomitant]
     Dosage: 30 MG, UNK
     Dates: start: 20130709, end: 20130710
  40. INDERAL [Concomitant]
     Dosage: 10 MG, UNK
     Dates: start: 20130711, end: 20130712
  41. CIRCADIN RETARD [Concomitant]
     Dosage: 2 MG, UNK
     Dates: start: 20130708
  42. CALMABENE [Concomitant]
     Dosage: 50 MG, UNK
     Dates: start: 20130721

REACTIONS (1)
  - Pulmonary embolism [Recovered/Resolved]
